FAERS Safety Report 9434801 (Version 1)
Quarter: 2013Q3

REPORT INFORMATION
  Report Type: Spontaneous
  Country: US (occurrence: US)
  Receive Date: 20130801
  Receipt Date: 20130801
  Transmission Date: 20140515
  Serious: No
  Sender: FDA-Public Use
  Company Number: US-ROXANE LABORATORIES, INC.-2013-RO-01287RO

PATIENT
  Age: 67 Year
  Sex: Female

DRUGS (1)
  1. CODEINE SULFATE [Suspect]

REACTIONS (1)
  - Drug hypersensitivity [Unknown]
